FAERS Safety Report 6642028-7 (Version None)
Quarter: 2010Q1

REPORT INFORMATION
  Report Type: 
  Country: None (occurrence: None)
  Receive Date: 20100319
  Receipt Date: 20100309
  Transmission Date: 20100710
  Serious: Yes (Death)
  Sender: FDA-Public Use
  Company Number: US-JNJFOC-20091008341

PATIENT
  Sex: Female

DRUGS (1)
  1. REMICADE [Suspect]
     Indication: RHEUMATOID ARTHRITIS
     Dosage: DOSE: 2 VIALS
     Route: 042

REACTIONS (3)
  - CARDIOVASCULAR DISORDER [None]
  - GALLBLADDER DISORDER [None]
  - HEPATIC FAILURE [None]
